FAERS Safety Report 7524791-6 (Version None)
Quarter: 2011Q2

REPORT INFORMATION
  Report Type: 
  Country: None (occurrence: None)
  Receive Date: 20110525
  Receipt Date: 20110511
  Transmission Date: 20111010
  Serious: Yes (Hospitalization)
  Sender: FDA-Public Use
  Company Number: WAES 1007USA01099

PATIENT
  Age: 45 Year
  Sex: Female

DRUGS (9)
  1. BORTEZOMIB [Suspect]
     Indication: MULTIPLE MYELOMA
     Dosage: 2.0 MG/DAILY/IV
     Route: 042
     Dates: start: 20100401, end: 20100701
  2. ETOPOSIDE [Suspect]
     Indication: FEBRILE NEUTROPENIA
     Dosage: 80 MG/IV
     Route: 042
     Dates: start: 20100722, end: 20100725
  3. CYCLOPHOSPHAMIDE [Suspect]
     Indication: FEBRILE NEUTROPENIA
     Dosage: 800 MG/IV
     Route: 042
     Dates: start: 20100722, end: 20100725
  4. THALIDOMIDE [Suspect]
     Indication: FEBRILE NEUTROPENIA
     Dosage: 400 MG/PO
     Route: 048
     Dates: start: 20100722, end: 20100726
  5. ONDANSETRON [Suspect]
     Indication: NAUSEA
     Dosage: 8 MG/IV
     Route: 042
     Dates: start: 20100722, end: 20100802
  6. DOXORUBICIN HCL [Suspect]
     Indication: FEBRILE NEUTROPENIA
     Dosage: 20 MG/IV
     Route: 042
     Dates: start: 20100722, end: 20100725
  7. DECADRON [Suspect]
     Indication: FEBRILE NEUTROPENIA
     Dosage: 80 MG/PO
     Route: 048
     Dates: start: 20100722, end: 20100727
  8. CAP VORINOSTAT [Suspect]
     Indication: MULTIPLE MYELOMA
     Dosage: 400 MG/DAILY/PO
     Route: 048
     Dates: start: 20100401, end: 20100704
  9. CISPLATIN [Suspect]
     Indication: FEBRILE NEUTROPENIA
     Dosage: 20 MG/IV
     Route: 042
     Dates: start: 20100722, end: 20100725

REACTIONS (11)
  - ELECTROLYTE IMBALANCE [None]
  - GASTROOESOPHAGEAL REFLUX DISEASE [None]
  - BRONCHOPNEUMONIA [None]
  - DISEASE PROGRESSION [None]
  - HYPERCHLORHYDRIA [None]
  - HAEMOGLOBIN DECREASED [None]
  - MULTIPLE MYELOMA [None]
  - DIARRHOEA [None]
  - FEBRILE NEUTROPENIA [None]
  - INFECTION [None]
  - MUCOSAL INFLAMMATION [None]
